FAERS Safety Report 7573599-4 (Version None)
Quarter: 2011Q2

REPORT INFORMATION
  Report Type: 
  Country: None (occurrence: None)
  Receive Date: 20110627
  Receipt Date: 20110615
  Transmission Date: 20111010
  Serious: Yes (Hospitalization, Other)
  Sender: FDA-Public Use
  Company Number: US-ROCHE-537361

PATIENT
  Sex: Male
  Weight: 63.5 kg

DRUGS (5)
  1. TETRACYCLIN [Concomitant]
     Indication: ACNE
     Dates: start: 19951206
  2. BENZAMYCIN [Concomitant]
     Dates: start: 19961210
  3. ACCUTANE [Suspect]
     Route: 065
     Dates: start: 19990310, end: 19990810
  4. RETIN-A [Concomitant]
     Dates: start: 19981005
  5. ERYTHROMYCIN [Concomitant]
     Indication: ACNE
     Dates: start: 19990309

REACTIONS (9)
  - INFLAMMATORY BOWEL DISEASE [None]
  - ABDOMINAL PAIN [None]
  - MYOSITIS [None]
  - COLITIS ULCERATIVE [None]
  - COLITIS [None]
  - ARTHRITIS REACTIVE [None]
  - INTESTINAL OBSTRUCTION [None]
  - CROHN'S DISEASE [None]
  - EMOTIONAL DISTRESS [None]
